FAERS Safety Report 6672664-3 (Version None)
Quarter: 2010Q2

REPORT INFORMATION
  Report Type: 
  Country: None (occurrence: None)
  Receive Date: 20100408
  Receipt Date: 20100330
  Transmission Date: 20101027
  Serious: Yes (Hospitalization, Other)
  Sender: FDA-Public Use
  Company Number: US-SANOFI-AVENTIS-2010SA019385

PATIENT
  Age: 77 Year
  Sex: Female

DRUGS (4)
  1. LANTUS [Suspect]
     Dosage: DOSE:8 UNIT(S)
     Route: 058
  2. LANTUS [Suspect]
     Dosage: DOSE:5 UNIT(S)
     Route: 058
     Dates: start: 20080101
  3. SOLOSTAR [Suspect]
     Dates: start: 20080101
  4. HUMALOG [Suspect]
     Route: 065

REACTIONS (5)
  - BLINDNESS UNILATERAL [None]
  - CATARACT OPERATION [None]
  - EYE HAEMORRHAGE [None]
  - HEARING IMPAIRED [None]
  - HYPERGLYCAEMIA [None]
